FAERS Safety Report 10452222 (Version 2)
Quarter: 2017Q4

REPORT INFORMATION
  Report Type: Spontaneous
  Country: US (occurrence: US)
  Receive Date: 20140915
  Receipt Date: 20171106
  Transmission Date: 20180320
  Serious: Yes (Hospitalization, Other)
  Sender: FDA-Public Use
  Company Number: PHEH2014US017687

PATIENT
  Sex: Female

DRUGS (2)
  1. GLEEVEC [Suspect]
     Active Substance: IMATINIB MESYLATE
     Indication: CHRONIC MYELOID LEUKAEMIA
     Dosage: 400 MG, TWO TIMES PER DAY
     Route: 048
     Dates: start: 20071201, end: 20151201
  2. TASIGNA [Suspect]
     Active Substance: NILOTINIB
     Indication: CHRONIC MYELOID LEUKAEMIA
     Dosage: 150 MG, BID
     Route: 065
     Dates: start: 20151201

REACTIONS (13)
  - Feeling abnormal [Unknown]
  - Electrocardiogram QT prolonged [Unknown]
  - Weight decreased [Unknown]
  - Palpitations [Unknown]
  - Oedema [Unknown]
  - Swelling [Unknown]
  - Carbohydrate antigen 125 increased [Unknown]
  - Weight increased [Unknown]
  - Pollakiuria [Unknown]
  - Vomiting [Unknown]
  - Fluid retention [Not Recovered/Not Resolved]
  - Blood potassium decreased [Unknown]
  - Coma [Unknown]
